FAERS Safety Report 10229175 (Version 2)
Quarter: 2014Q2

REPORT INFORMATION
  Report Type: Spontaneous
  Country: US (occurrence: US)
  Receive Date: 20140611
  Receipt Date: 20140616
  Transmission Date: 20141212
  Serious: No
  Sender: FDA-Public Use
  Company Number: US-DRREDDYS-USA/USA/14/0040992

PATIENT
  Age: 65 Year
  Sex: Male
  Weight: 97.5 kg

DRUGS (1)
  1. OMEPRAZOLE [Suspect]
     Indication: DYSPEPSIA
     Route: 048

REACTIONS (1)
  - Muscle spasms [Recovered/Resolved]
